FAERS Safety Report 10802047 (Version 1)
Quarter: 2015Q1

REPORT INFORMATION
  Report Type: Spontaneous
  Country: SI (occurrence: SI)
  Receive Date: 20150217
  Receipt Date: 20150217
  Transmission Date: 20150721
  Serious: Yes (Other)
  Sender: FDA-Public Use
  Company Number: SI-TEVA-539783ISR

PATIENT
  Age: 45 Year
  Sex: Female

DRUGS (7)
  1. OXALIPLATIN TEVA 5 MG/ML [Suspect]
     Active Substance: OXALIPLATIN
     Indication: COLON CANCER METASTATIC
     Route: 042
     Dates: start: 20150112, end: 20150112
  2. S MEDROL 125 MG [Concomitant]
  3. TRAMAL [Concomitant]
     Active Substance: TRAMADOL
  4. SPASMEX [Concomitant]
     Active Substance: TROSPIUM CHLORIDE
  5. ANALGIN [Concomitant]
     Active Substance: METAMIZOLE SODIUM
  6. TAVEGYL 2 MG [Concomitant]
  7. ACIPAN [Concomitant]

REACTIONS (4)
  - Infusion related reaction [Unknown]
  - Muscle spasms [Unknown]
  - Asphyxia [Unknown]
  - Erythema [Unknown]

NARRATIVE: CASE EVENT DATE: 20150112
